FAERS Safety Report 8092843-0 (Version None)
Quarter: 2012Q1

REPORT INFORMATION
  Report Type: 
  Country: None (occurrence: None)
  Receive Date: 20120128
  Receipt Date: 20110722
  Transmission Date: 20120608
  Serious: No
  Sender: FDA-Public Use
  Company Number: US-ABBOTT-11P-163-0841708-00

PATIENT
  Sex: Female

DRUGS (14)
  1. LANTUS [Concomitant]
     Indication: DIABETES MELLITUS
  2. LISINOPRIL [Concomitant]
     Indication: HYPERTENSION
  3. DIURETICS [Concomitant]
     Indication: DIURETIC THERAPY
  4. VITAMIN B COMPLEX CAP [Concomitant]
     Indication: PRODUCT USED FOR UNKNOWN INDICATION
  5. ALLOPURINOL [Concomitant]
     Indication: GOUT
  6. FLORESTAL [Concomitant]
     Indication: ILL-DEFINED DISORDER
  7. SYNTHROID [Concomitant]
     Indication: HYPOTHYROIDISM
  8. HUMIRA [Suspect]
     Indication: CROHN'S DISEASE
     Dates: start: 20100101
  9. LOVAZA [Concomitant]
     Indication: MINERAL SUPPLEMENTATION
  10. ATENOLOL [Concomitant]
     Indication: HYPERTENSION
  11. JANUVIA [Concomitant]
     Indication: DIABETES MELLITUS
  12. GLIMEPIRIDE [Concomitant]
     Indication: DIABETES MELLITUS
  13. PRAVASTATIN [Concomitant]
     Indication: PRODUCT USED FOR UNKNOWN INDICATION
  14. VITAMIN D [Concomitant]
     Indication: PRODUCT USED FOR UNKNOWN INDICATION

REACTIONS (4)
  - EYE IRRITATION [None]
  - EAR INFECTION [None]
  - CYSTITIS [None]
  - GINGIVAL INFECTION [None]
